FAERS Safety Report 26174364 (Version 1)
Quarter: 2025Q4

REPORT INFORMATION
  Report Type: Spontaneous
  Country: US (occurrence: US)
  Receive Date: 20251218
  Receipt Date: 20251218
  Transmission Date: 20260118
  Serious: No
  Sender: ALVOGEN
  Company Number: US-ALVOGEN-2025098371

PATIENT
  Age: 66 Year
  Sex: Female

DRUGS (4)
  1. FENTANYL [Suspect]
     Active Substance: FENTANYL
     Indication: Back pain
     Dosage: SINCE THE LAST 5 MONTHS
     Dates: start: 2025
  2. FENTANYL [Suspect]
     Active Substance: FENTANYL
     Indication: Back pain
     Dosage: 100 MCG?EXPIRATION DATE: SEP-2027
     Dates: start: 2025
  3. PERCOCET [Concomitant]
     Active Substance: ACETAMINOPHEN\OXYCODONE HYDROCHLORIDE
     Indication: Pain
  4. XANAX [Concomitant]
     Active Substance: ALPRAZOLAM
     Indication: Product used for unknown indication

REACTIONS (4)
  - Device malfunction [Unknown]
  - Device adhesion issue [Unknown]
  - Wrong technique in product usage process [Unknown]
  - No adverse event [Unknown]

NARRATIVE: CASE EVENT DATE: 20250101
